FAERS Safety Report 22235232 (Version 3)
Quarter: 2024Q2

REPORT INFORMATION
  Report Type: Report from Study
  Country: TR (occurrence: TR)
  Receive Date: 20230420
  Receipt Date: 20240508
  Transmission Date: 20240716
  Serious: Yes (Other)
  Sender: FDA-Public Use
  Company Number: TR-AMRYT PHARMACEUTICALS DAC-AEGR006238

PATIENT

DRUGS (24)
  1. METRELEPTIN [Suspect]
     Active Substance: METRELEPTIN
     Indication: Congenital generalised lipodystrophy
     Dosage: 5 MILLIGRAM, QD
     Route: 058
     Dates: start: 20150728
  2. TOUJEO [Concomitant]
     Active Substance: INSULIN GLARGINE
     Indication: Diabetes mellitus
     Dosage: 26 INTERNATIONAL UNIT, QD
     Route: 058
     Dates: start: 20220315
  3. TOUJEO [Concomitant]
     Active Substance: INSULIN GLARGINE
     Dosage: 7 IU INTERNATIONAL UNIT(S), QD
     Route: 058
     Dates: start: 20220719
  4. GLIFIX PLUS [Concomitant]
     Indication: Diabetes mellitus
     Dosage: 15/1000 MILLIGRAM, BID
     Route: 048
     Dates: start: 2015
  5. LOPID [Concomitant]
     Active Substance: GEMFIBROZIL
     Indication: Hypertriglyceridaemia
     Dosage: 600 MILLIGRAM, BID
     Route: 048
     Dates: start: 2012
  6. TIOPATI [Concomitant]
     Indication: Neuropathy peripheral
     Dosage: 600 MILLIGRAM, QD
     Route: 048
     Dates: start: 20120419
  7. TIOPATI [Concomitant]
     Indication: Diabetic neuropathy
  8. D COLEFOR [Concomitant]
     Indication: Vitamin D deficiency
     Dosage: 20000 INTERNATIONAL UNIT, ONCE A MONTH
     Route: 048
     Dates: start: 20210416
  9. D COLEFOR [Concomitant]
     Indication: Hypercalcaemia
  10. ZENTIUS FLASH [Concomitant]
     Indication: Hypocalcaemia
     Dosage: 1500 MG + 400 IU
     Route: 048
     Dates: start: 20220719
  11. ZENTIUS FLASH [Concomitant]
     Indication: Vitamin D deficiency
     Dosage: 600 MG/400 IU
     Route: 048
  12. ECOPIRIN PRO [Concomitant]
     Indication: Prophylaxis
     Dosage: 81 MILLIGRAM, QD
     Route: 048
     Dates: start: 20210416
  13. SINORETIK FORT [Concomitant]
     Indication: Hypertension
     Dosage: 2012 MILLIGRAM, QD
     Route: 048
     Dates: start: 20190311
  14. SINORETIK FORT [Concomitant]
     Dosage: 20 / 12.5 MILLIGRAM
     Route: 048
  15. EUTHYROX [Concomitant]
     Active Substance: LEVOTHYROXINE SODIUM
     Indication: Hypothyroidism
     Dosage: 300 MICROGRAM, QD
     Route: 048
     Dates: start: 20120419
  16. FOLIC ACID [Concomitant]
     Active Substance: FOLIC ACID
     Indication: Hypovitaminosis
     Dosage: 5 MILLIGRAM, QD
     Route: 048
     Dates: start: 20210416
  17. FOLIC ACID [Concomitant]
     Active Substance: FOLIC ACID
     Indication: Myelodysplastic syndrome
  18. ARANESP [Concomitant]
     Active Substance: DARBEPOETIN ALFA
     Indication: Anaemia
     Dosage: 100 MICROGRAM, ONCE A WEEK
     Route: 058
     Dates: start: 20210903
  19. ARANESP [Concomitant]
     Active Substance: DARBEPOETIN ALFA
     Indication: Myelodysplastic syndrome
  20. CELLCEPT [Concomitant]
     Active Substance: MYCOPHENOLATE MOFETIL
     Indication: Proteinuria
     Dosage: 500 MILLIGRAM, BID
     Route: 048
     Dates: start: 20220124
  21. CELLCEPT [Concomitant]
     Active Substance: MYCOPHENOLATE MOFETIL
     Indication: Nephrotic syndrome
  22. PARLODEL [Concomitant]
     Active Substance: BROMOCRIPTINE MESYLATE
     Indication: Diabetes mellitus
     Dosage: 2.5 MILLIGRAM, BID
     Route: 048
     Dates: start: 20221220
  23. PARLODEL [Concomitant]
     Active Substance: BROMOCRIPTINE MESYLATE
     Indication: Insulin resistance
     Dosage: 1.25 MILLIGRAM, BID
     Route: 048
  24. BENEXOL [CYANOCOBALAMIN;PYRIDOXINE HYDROCHLORIDE;THIAMINE HYDROCHLORID [Concomitant]
     Indication: Vitamin B complex deficiency
     Dosage: 1 DOSAGE FORM, QD
     Route: 048

REACTIONS (11)
  - Diabetes mellitus [Unknown]
  - Periodontitis [Unknown]
  - Gingival abscess [Unknown]
  - Proteinuria [Unknown]
  - Blood triglycerides increased [Unknown]
  - Insulin resistance [Unknown]
  - Hyperphagia [Unknown]
  - Hypertriglyceridaemia [Unknown]
  - Glycosylated haemoglobin increased [Unknown]
  - Drug specific antibody present [Unknown]
  - Drug ineffective [Unknown]

NARRATIVE: CASE EVENT DATE: 20210904
